FAERS Safety Report 17245566 (Version 1)
Quarter: 2020Q1

REPORT INFORMATION
  Report Type: Spontaneous
  Country: FR (occurrence: FR)
  Receive Date: 20200108
  Receipt Date: 20200108
  Transmission Date: 20200409
  Serious: Yes (Death, Hospitalization)
  Sender: FDA-Public Use
  Company Number: FR-TEVA-2020-FR-1163558

PATIENT
  Age: 82 Year
  Sex: Female
  Weight: 68.5 kg

DRUGS (15)
  1. DOLIPRANE [Concomitant]
     Active Substance: ACETAMINOPHEN
     Route: 048
  2. SOTALEX 80 MG, COMPRIME SECABLE [Concomitant]
     Route: 048
  3. CARBOPLATINE [Concomitant]
     Active Substance: CARBOPLATIN
     Route: 042
     Dates: start: 20190417
  4. NAVELBINE [Concomitant]
     Active Substance: VINORELBINE TARTRATE
     Dates: start: 20190417
  5. FORLAX 10 G, POUDRE POUR SOLUTION BUVABLE EN SACHET-DOSE [Concomitant]
     Active Substance: POLYETHYLENE GLYCOL 4000
     Route: 048
  6. LEVOTHYROX 75 MICROGRAMMES, COMPRIME SECABLE [Concomitant]
     Active Substance: LEVOTHYROXINE SODIUM
     Route: 048
  7. OGASTORO 15 MG, COMPRIME ORODISPERSIBLE [Concomitant]
     Active Substance: LANSOPRAZOLE
     Route: 048
  8. KARDEGIC [Concomitant]
     Active Substance: ASPIRIN DL-LYSINE
     Route: 048
  9. PERINDOPRIL [Suspect]
     Active Substance: PERINDOPRIL
     Indication: HYPERTENSION
     Dosage: 2 MG PER DAY
     Route: 048
  10. VERSATIS 5 %, EMPLATRE MEDICAMENTEUX [Concomitant]
     Active Substance: LIDOCAINE
     Route: 062
  11. FUROSEMIDE. [Suspect]
     Active Substance: FUROSEMIDE
     Indication: HYPERTENSION
     Dosage: 40 MG PER DAY
     Route: 048
  12. KETOPROFENE [Suspect]
     Active Substance: KETOPROFEN
     Indication: PAIN
     Dosage: 1 DOSAGE FORMS PER DAY
     Route: 048
     Dates: start: 20190704, end: 20190704
  13. DUROGESIC [Concomitant]
     Active Substance: FENTANYL
     Route: 062
  14. LERCAN 10 MG, COMPRIME PELLICULE SECABLE [Suspect]
     Active Substance: LERCANIDIPINE HYDROCHLORIDE
     Indication: HYPERTENSION
     Dosage: 1 DOSAGE FORMS PER DAY
     Route: 048
  15. OXYNORMORO 5 MG, COMPRIME ORODISPERSIBLE [Concomitant]
     Active Substance: OXYCODONE HYDROCHLORIDE
     Dosage: ON-DEMAND 5/J MAX
     Route: 048

REACTIONS (3)
  - Condition aggravated [Fatal]
  - Acute kidney injury [Fatal]
  - Diarrhoea [Fatal]

NARRATIVE: CASE EVENT DATE: 20190704
